FAERS Safety Report 5898723-0 (Version None)
Quarter: 2008Q3

REPORT INFORMATION
  Report Type: 
  Country: None (occurrence: None)
  Receive Date: 20080925
  Receipt Date: 20080612
  Transmission Date: 20090109
  Serious: No
  Sender: FDA-Public Use
  Company Number: A0726795A

PATIENT
  Age: 48 Year
  Sex: Female

DRUGS (8)
  1. WELLBUTRIN XL [Suspect]
     Indication: DEPRESSION
     Dosage: 150MG PER DAY
     Route: 048
     Dates: start: 20070501
  2. FLORINEF [Concomitant]
  3. MIDODRINE HYDROCHLORIDE [Concomitant]
  4. CLARINEX [Concomitant]
  5. CLONAZEPAM [Concomitant]
  6. LAMICTAL [Concomitant]
  7. VITAMIN TAB [Concomitant]
  8. AMOXICILLIN [Concomitant]
     Indication: ROSACEA

REACTIONS (3)
  - DEPRESSION [None]
  - MEDICATION RESIDUE [None]
  - PHARMACEUTICAL PRODUCT COMPLAINT [None]
